FAERS Safety Report 19839454 (Version 1)
Quarter: 2021Q3

REPORT INFORMATION
  Report Type: Spontaneous
  Country: US (occurrence: US)
  Receive Date: 20210916
  Receipt Date: 20210916
  Transmission Date: 20211014
  Serious: Yes (Other)
  Sender: FDA-Public Use
  Company Number: US-SUN PHARMACEUTICAL INDUSTRIES LTD-2021R1-311397

PATIENT
  Age: 89 Year
  Sex: Male

DRUGS (2)
  1. ALBUTEROL. [Concomitant]
     Active Substance: ALBUTEROL
     Indication: PRODUCT USED FOR UNKNOWN INDICATION
     Dosage: UNK
     Route: 065
  2. LORAZEPAM. [Suspect]
     Active Substance: LORAZEPAM
     Indication: SEDATION
     Dosage: 1 MILLIGRAM
     Route: 065

REACTIONS (10)
  - Aspiration [Recovering/Resolving]
  - Skin laceration [Unknown]
  - Injury [Unknown]
  - Lethargy [Unknown]
  - Haematoma [Unknown]
  - Confusional state [Recovering/Resolving]
  - Cough [Recovering/Resolving]
  - Sedation [Unknown]
  - Delirium [Unknown]
  - Fall [Unknown]
